FAERS Safety Report 21721470 (Version 1)
Quarter: 2022Q4

REPORT INFORMATION
  Report Type: Spontaneous
  Country: US (occurrence: US)
  Receive Date: 20221213
  Receipt Date: 20221213
  Transmission Date: 20230113
  Serious: Yes (Hospitalization, Other)
  Sender: FDA-Public Use
  Company Number: US-ALVOGEN-2022-ALVOGEN-118289

PATIENT
  Age: 74 Year
  Sex: Male

DRUGS (11)
  1. BUPRENORPHINE [Suspect]
     Active Substance: BUPRENORPHINE
     Indication: Pain management
  2. BUPIVACAINE [Concomitant]
     Active Substance: BUPIVACAINE
     Indication: General anaesthesia
     Dosage: DOSE: 20 ML OF 0.25%
  3. CLONIDINE [Concomitant]
     Active Substance: CLONIDINE
     Indication: Pain management
  4. DEXAMETHASONE [Concomitant]
     Active Substance: DEXAMETHASONE
     Indication: Pain management
  5. PREGABALIN [Concomitant]
     Active Substance: PREGABALIN
     Indication: Fibromyalgia
     Dosage: THRICE A DAY
  6. OMEPRAZOLE [Concomitant]
     Active Substance: OMEPRAZOLE
     Indication: Product used for unknown indication
  7. APREPITANT [Concomitant]
     Active Substance: APREPITANT
     Indication: Product used for unknown indication
  8. PERPHENAZINE [Concomitant]
     Active Substance: PERPHENAZINE
     Indication: Procedural nausea
  9. ACETAMINOPHEN [Concomitant]
     Active Substance: ACETAMINOPHEN
     Indication: Product used for unknown indication
  10. FENTANYL [Concomitant]
     Active Substance: FENTANYL
     Indication: Analgesic therapy
  11. MIDAZOLAM [Concomitant]
     Active Substance: MIDAZOLAM
     Indication: Sedation

REACTIONS (1)
  - Respiratory depression [Unknown]
